FAERS Safety Report 5174185-6 (Version None)
Quarter: 2006Q4

REPORT INFORMATION
  Report Type: 
  Country: None (occurrence: None)
  Receive Date: 20061214
  Receipt Date: 20061208
  Transmission Date: 20070319
  Serious: Yes (Hospitalization)
  Sender: FDA-Public Use
  Company Number: US-JNJFOC-20060905093

PATIENT
  Age: 86 Year
  Sex: Female

DRUGS (8)
  1. TYLENOL (CAPLET) [Suspect]
  2. TYLENOL (CAPLET) [Suspect]
  3. TYLENOL (CAPLET) [Suspect]
     Indication: PAIN
  4. LASIX [Concomitant]
     Indication: DIURETIC THERAPY
  5. SYNTHROID [Concomitant]
     Indication: THYROID DISORDER
  6. DIGOXIN [Concomitant]
     Indication: CARDIAC DISORDER
  7. COUMADIN [Concomitant]
     Indication: ANTICOAGULANT THERAPY
  8. OXYGEN [Concomitant]
     Dosage: 2-4 L/MIN WITH ACTIVITY/SLEEP

REACTIONS (5)
  - BOWEL MOVEMENT IRREGULARITY [None]
  - CHRONIC OBSTRUCTIVE PULMONARY DISEASE [None]
  - FALL [None]
  - PLEURAL EFFUSION [None]
  - SWELLING [None]
